FAERS Safety Report 23915104 (Version 1)
Quarter: 2024Q2

REPORT INFORMATION
  Report Type: Spontaneous
  Country: PA (occurrence: PA)
  Receive Date: 20240529
  Receipt Date: 20240529
  Transmission Date: 20240716
  Serious: Yes (Hospitalization, Other)
  Sender: FDA-Public Use
  Company Number: PA-BAYER-2024A077331

PATIENT
  Age: 71 Year
  Sex: Male

DRUGS (1)
  1. ULTRAVIST [Suspect]
     Active Substance: IOPROMIDE
     Indication: Angiogram
     Dosage: UNK UNK, ONCE
     Route: 042
     Dates: start: 20240522

REACTIONS (2)
  - Infusion site extravasation [None]
  - Blister [None]

NARRATIVE: CASE EVENT DATE: 20240522
